FAERS Safety Report 19702986 (Version 3)
Quarter: 2021Q3

REPORT INFORMATION
  Report Type: Spontaneous
  Country: US (occurrence: US)
  Receive Date: 20210816
  Receipt Date: 20210922
  Transmission Date: 20211014
  Serious: No
  Sender: FDA-Public Use
  Company Number: US-STRONGBRIDGE BIOPHARMA-2021-STR-000231

PATIENT
  Age: 54 Year
  Sex: Female

DRUGS (3)
  1. KEVEYIS [Suspect]
     Active Substance: DICHLORPHENAMIDE
     Indication: FAMILIAL PERIODIC PARALYSIS
     Dosage: 50 MG, BID
     Route: 048
     Dates: start: 20210624
  2. KEVEYIS [Suspect]
     Active Substance: DICHLORPHENAMIDE
     Dosage: 125 MG, QD (75 MG QAM, 50 MG QPM)
     Route: 048
     Dates: start: 20210912
  3. KEVEYIS [Suspect]
     Active Substance: DICHLORPHENAMIDE
     Dosage: 100 MG, QD
     Route: 048

REACTIONS (18)
  - Palpitations [Unknown]
  - Eye pain [Recovering/Resolving]
  - Abdominal distension [Unknown]
  - Flatulence [Unknown]
  - Visual impairment [Unknown]
  - Paraesthesia [Unknown]
  - Electrolyte depletion [Unknown]
  - Gastrooesophageal reflux disease [Unknown]
  - Paraesthesia oral [Unknown]
  - Nausea [Unknown]
  - Wrong technique in product usage process [Unknown]
  - Abdominal pain [Unknown]
  - Hypoaesthesia oral [Unknown]
  - Hypoaesthesia [Unknown]
  - Headache [Recovering/Resolving]
  - Gastrointestinal disorder [Unknown]
  - Migraine with aura [Unknown]
  - Diarrhoea [Unknown]

NARRATIVE: CASE EVENT DATE: 20210912
